FAERS Safety Report 5204830-8 (Version None)
Quarter: 2007Q1

REPORT INFORMATION
  Report Type: 
  Country: None (occurrence: None)
  Receive Date: 20070110
  Receipt Date: 20060908
  Transmission Date: 20070707
  Serious: No
  Sender: FDA-Public Use
  Company Number: US-BRISTOL-MYERS SQUIBB COMPANY-13457668

PATIENT
  Age: 32 Year
  Sex: Female

DRUGS (6)
  1. ABILIFY [Suspect]
     Indication: SCHIZOPHRENIA
     Route: 048
     Dates: start: 20060505, end: 20060724
  2. ABILIFY [Suspect]
     Indication: CEREBRAL PALSY
     Route: 048
     Dates: start: 20060505, end: 20060724
  3. ABILIFY [Suspect]
     Indication: BLINDNESS CORTICAL
     Route: 048
     Dates: start: 20060505, end: 20060724
  4. ABILIFY [Suspect]
     Indication: HEMIPARESIS
     Route: 048
     Dates: start: 20060505, end: 20060724
  5. REMERON [Concomitant]
     Dosage: DURATION OF THERAPY:  ^LONG TERM^
  6. KLONOPIN [Concomitant]
     Dosage: DURATION OF THERAPY:  ^LONG TERM^

REACTIONS (1)
  - TONGUE DISORDER [None]
